FAERS Safety Report 4499294-6 (Version None)
Quarter: 2004Q4

REPORT INFORMATION
  Report Type: 
  Country: None (occurrence: None)
  Receive Date: 20041111
  Receipt Date: 20041027
  Transmission Date: 20050328
  Serious: Yes (Death, Life-Threatening, Hospitalization)
  Sender: FDA-Public Use
  Company Number: SA-JNJFOC-20041100221

PATIENT
  Age: 55 Year
  Sex: Male

DRUGS (1)
  1. CAELYX [Suspect]
     Route: 042

REACTIONS (7)
  - ABDOMINAL PAIN [None]
  - ALANINE AMINOTRANSFERASE INCREASED [None]
  - ASPARTATE AMINOTRANSFERASE INCREASED [None]
  - DIARRHOEA [None]
  - DRUG TOXICITY [None]
  - HYPERBILIRUBINAEMIA [None]
  - WEIGHT DECREASED [None]
